FAERS Safety Report 6093729-3 (Version None)
Quarter: 2009Q1

REPORT INFORMATION
  Report Type: 
  Country: None (occurrence: None)
  Receive Date: 20090226
  Receipt Date: 20090218
  Transmission Date: 20090719
  Serious: Yes (Hospitalization)
  Sender: FDA-Public Use
  Company Number: JP-WATSON-2009-01224

PATIENT
  Age: 42 Year
  Sex: Male

DRUGS (1)
  1. PENTAMIDINE ISETHIONATE (WATSON LABORATORIES) [Suspect]
     Indication: PNEUMOCYSTIS JIROVECI PNEUMONIA
     Dosage: 300 MG, DAILY
     Route: 055
     Dates: start: 20070101, end: 20070101

REACTIONS (1)
  - TOXIC EPIDERMAL NECROLYSIS [None]
